FAERS Safety Report 5306385-6 (Version None)
Quarter: 2007Q2

REPORT INFORMATION
  Report Type: 
  Country: None (occurrence: None)
  Receive Date: 20070424
  Receipt Date: 20070424
  Transmission Date: 20071010
  Serious: Yes (Hospitalization)
  Sender: FDA-Public Use
  Company Number: US-ALLERGAN-0703666US

PATIENT
  Sex: Female
  Weight: 105.22 kg

DRUGS (10)
  1. BOTOX VS PLACEBO [Suspect]
     Indication: HYPERTONIC BLADDER
     Dosage: 50 UNITS, SINGLE
     Route: 030
     Dates: start: 20061127, end: 20061127
  2. SEROQUEL [Concomitant]
  3. LEXAPRO [Concomitant]
  4. VERELAN [Concomitant]
  5. SPIRONOLACTONE [Concomitant]
  6. METFORMIN HCL [Concomitant]
  7. NEXIUM [Concomitant]
  8. ALBUTEROL [Concomitant]
  9. ZEGERID [Concomitant]
  10. ZELNORM [Concomitant]

REACTIONS (1)
  - IMPAIRED GASTRIC EMPTYING [None]
